FAERS Safety Report 7797023-1 (Version None)
Quarter: 2011Q4

REPORT INFORMATION
  Report Type: 
  Country: None (occurrence: None)
  Receive Date: 20111005
  Receipt Date: 20110929
  Transmission Date: 20120403
  Serious: Yes (Other)
  Sender: FDA-Public Use
  Company Number: US-PFIZER INC-2011233550

PATIENT
  Sex: Female
  Weight: 56 kg

DRUGS (3)
  1. DEPO-PROVERA [Suspect]
     Indication: DYSMENORRHOEA
  2. DEPO-PROVERA [Suspect]
     Indication: OFF LABEL USE
     Dosage: 150 MG, UNK
     Route: 058
     Dates: start: 20110715
  3. DEPO-PROVERA [Suspect]
     Indication: MENORRHAGIA

REACTIONS (15)
  - ARTHROPATHY [None]
  - VISION BLURRED [None]
  - VISUAL IMPAIRMENT [None]
  - THROMBOSIS [None]
  - MOVEMENT DISORDER [None]
  - THYROID DISORDER [None]
  - EYE PAIN [None]
  - SINUSITIS [None]
  - EAR PAIN [None]
  - DYSSTASIA [None]
  - PAIN IN EXTREMITY [None]
  - DYSPNOEA [None]
  - LIP SWELLING [None]
  - PUPILLARY DISORDER [None]
  - EYE SWELLING [None]
